FAERS Safety Report 8505052-5 (Version None)
Quarter: 2012Q3

REPORT INFORMATION
  Report Type: 
  Country: None (occurrence: None)
  Receive Date: 20120712
  Receipt Date: 20120703
  Transmission Date: 20120928
  Serious: Yes (Other)
  Sender: FDA-Public Use
  Company Number: US-NAPPMUNDI-USA-2012-0086492

PATIENT
  Sex: Female
  Weight: 81.633 kg

DRUGS (1)
  1. BUTRANS [Suspect]
     Indication: PAIN
     Dosage: 10 MCG/HR, UNK
     Route: 062
     Dates: start: 20120301, end: 20120301

REACTIONS (7)
  - JOINT RANGE OF MOTION DECREASED [None]
  - NAUSEA [None]
  - DYSPNOEA [None]
  - MONOPLEGIA [None]
  - PAIN [None]
  - SENSORY LOSS [None]
  - FATIGUE [None]
